FAERS Safety Report 7663626-8 (Version None)
Quarter: 2011Q3

REPORT INFORMATION
  Report Type: 
  Country: None (occurrence: None)
  Receive Date: 20110805
  Receipt Date: 20100819
  Transmission Date: 20111222
  Serious: No
  Sender: FDA-Public Use
  Company Number: US-ABBOTT-10P-163-0665791-00

PATIENT
  Sex: Female
  Weight: 62.652 kg

DRUGS (4)
  1. SIMVASTATIN [Concomitant]
     Indication: PRODUCT USED FOR UNKNOWN INDICATION
     Dates: start: 20100101
  2. NIASPAN [Suspect]
     Indication: BLOOD CHOLESTEROL
  3. VIT C [Concomitant]
     Indication: PRODUCT USED FOR UNKNOWN INDICATION
  4. VIT D [Concomitant]
     Indication: PRODUCT USED FOR UNKNOWN INDICATION

REACTIONS (5)
  - PARAESTHESIA [None]
  - DIZZINESS [None]
  - OEDEMA PERIPHERAL [None]
  - GENERALISED ERYTHEMA [None]
  - SLUGGISHNESS [None]
